FAERS Safety Report 6803055-X (Version None)
Quarter: 2010Q2

REPORT INFORMATION
  Report Type: 
  Country: None (occurrence: None)
  Receive Date: 20100628
  Receipt Date: 20100623
  Transmission Date: 20101027
  Serious: Yes (Hospitalization)
  Sender: FDA-Public Use
  Company Number: GB-BAYER-201029914GPV

PATIENT
  Age: 86 Year
  Sex: Male

DRUGS (7)
  1. ASPIRIN [Suspect]
     Indication: DRUG USE FOR UNKNOWN INDICATION
     Dosage: 4/1 DAYS
     Route: 048
     Dates: end: 20100521
  2. FERROUS FUMARATE [Suspect]
     Indication: DRUG USE FOR UNKNOWN INDICATION
     Route: 048
     Dates: start: 20100514, end: 20100521
  3. ALFUZOSIN HCL [Concomitant]
  4. BISOPROLOL FUMARATE [Concomitant]
  5. CANDESARTAN [Concomitant]
  6. FINASTERIDE [Concomitant]
  7. FUROSEMIDE [Concomitant]

REACTIONS (4)
  - GASTROINTESTINAL HAEMORRHAGE [None]
  - HAEMATURIA [None]
  - MELAENA [None]
  - WEIGHT DECREASED [None]
